FAERS Safety Report 7343092-2 (Version None)
Quarter: 2011Q1

REPORT INFORMATION
  Report Type: 
  Country: None (occurrence: None)
  Receive Date: 20110310
  Receipt Date: 20110217
  Transmission Date: 20110831
  Serious: No
  Sender: FDA-Public Use
  Company Number: US-BAYER-2011-017262

PATIENT

DRUGS (1)
  1. ULTRAVIST 150 [Suspect]
     Indication: PRODUCT USED FOR UNKNOWN INDICATION
     Dosage: 125 ML, ONCE
     Dates: start: 20101217, end: 20101217

REACTIONS (1)
  - URTICARIA [None]
